FAERS Safety Report 6151206-5 (Version None)
Quarter: 2009Q2

REPORT INFORMATION
  Report Type: 
  Country: None (occurrence: None)
  Receive Date: 20090410
  Receipt Date: 20090406
  Transmission Date: 20091009
  Serious: Yes (Hospitalization)
  Sender: FDA-Public Use
  Company Number: US-ASTRAZENECA-2009UW08641

PATIENT
  Sex: Male

DRUGS (3)
  1. SEROQUEL [Suspect]
     Indication: DEPRESSION
     Dosage: 400MG TOTAL DAILY DOSE (TID)
     Route: 048
  2. AMYTRIPTILINE [Concomitant]
     Indication: DEPRESSION
  3. HYDROCODONE BITARTRATE [Concomitant]
     Indication: NEURALGIA

REACTIONS (3)
  - ARTHROPATHY [None]
  - DIABETES MELLITUS [None]
  - PERFORATED ULCER [None]
